FAERS Safety Report 5327568-5 (Version None)
Quarter: 2007Q2

REPORT INFORMATION
  Report Type: 
  Country: None (occurrence: None)
  Receive Date: 20070517
  Receipt Date: 20070112
  Transmission Date: 20071010
  Serious: Yes (Hospitalization)
  Sender: FDA-Public Use
  Company Number: US-JNJFOC-20070103213

PATIENT
  Age: 24 Year
  Sex: Male

DRUGS (3)
  1. TRAMADOL IR [Suspect]
     Indication: INTENTIONAL DRUG MISUSE
     Route: 065
  2. BENZODIAZEPINE [Suspect]
     Indication: INTENTIONAL DRUG MISUSE
     Route: 048
  3. ATYPICAL ANTIPSYCHOTIC [Suspect]
     Indication: INTENTIONAL DRUG MISUSE
     Route: 065

REACTIONS (2)
  - INTENTIONAL SELF-INJURY [None]
  - MULTIPLE DRUG OVERDOSE INTENTIONAL [None]
